FAERS Safety Report 6902183-8 (Version None)
Quarter: 2010Q3

REPORT INFORMATION
  Report Type: 
  Country: None (occurrence: None)
  Receive Date: 20100803
  Receipt Date: 20080430
  Transmission Date: 20110219
  Serious: No
  Sender: FDA-Public Use
  Company Number: US-PFIZER INC-2008038359

PATIENT
  Sex: Male
  Weight: 50.8 kg

DRUGS (6)
  1. LYRICA [Suspect]
     Indication: FIBROMYALGIA
     Dates: start: 20080427
  2. OXYCONTIN [Concomitant]
  3. ZOFRAN [Concomitant]
  4. MORPHINE SULFATE [Concomitant]
  5. FERROUS SULFATE [Concomitant]
  6. HYDROMORPHONE [Concomitant]

REACTIONS (2)
  - FEELING JITTERY [None]
  - TREMOR [None]
